FAERS Safety Report 19278350 (Version 2)
Quarter: 2021Q4

REPORT INFORMATION
  Report Type: Report from Study
  Country: US (occurrence: US)
  Receive Date: 20210520
  Receipt Date: 20211112
  Transmission Date: 20220303
  Serious: Yes (Hospitalization, Other)
  Sender: FDA-Public Use
  Company Number: US-JNJFOC-20210452036

PATIENT
  Age: 54 Year
  Sex: Male
  Weight: 124 kg

DRUGS (14)
  1. MACITENTAN [Suspect]
     Active Substance: MACITENTAN
     Indication: Cardiac failure
     Route: 048
     Dates: start: 20191231
  2. MACITENTAN [Suspect]
     Active Substance: MACITENTAN
     Indication: Pulmonary vascular disorder
  3. ACETAMINOPHEN [Concomitant]
     Active Substance: ACETAMINOPHEN
     Indication: Pain
     Route: 048
  4. NIZORAL [Concomitant]
     Active Substance: KETOCONAZOLE
     Route: 061
  5. OXYGEN [Concomitant]
     Active Substance: OXYGEN
  6. ASPIRIN [Concomitant]
     Active Substance: ASPIRIN
  7. LIPITOR [Concomitant]
     Active Substance: ATORVASTATIN CALCIUM
     Indication: Blood cholesterol decreased
  8. LASIX [Concomitant]
     Active Substance: FUROSEMIDE
  9. HYDRALAZINE [Concomitant]
     Active Substance: HYDRALAZINE HYDROCHLORIDE
  10. ISORDIL [Concomitant]
     Active Substance: ISOSORBIDE DINITRATE
  11. COZAAR [Concomitant]
     Active Substance: LOSARTAN POTASSIUM
  12. NEURONTIN [Concomitant]
     Active Substance: GABAPENTIN
     Route: 048
  13. GLUCOPHAGE [Concomitant]
     Active Substance: METFORMIN HYDROCHLORIDE
  14. PROAIR HFA [Concomitant]
     Active Substance: ALBUTEROL SULFATE

REACTIONS (2)
  - Pulmonary hypertension [Not Recovered/Not Resolved]
  - Abdominal incarcerated hernia [Not Recovered/Not Resolved]

NARRATIVE: CASE EVENT DATE: 20210412
